FAERS Safety Report 18746052 (Version 2)
Quarter: 2024Q4

REPORT INFORMATION
  Report Type: Spontaneous
  Country: US (occurrence: US)
  Receive Date: 20210115
  Receipt Date: 20241206
  Transmission Date: 20250114
  Serious: Yes (Death, Other)
  Sender: RANBAXY
  Company Number: US-SUN PHARMACEUTICAL INDUSTRIES LTD-2020R1-275763

PATIENT
  Age: 31 Year
  Sex: Male

DRUGS (2)
  1. ACETAMINOPHEN [Suspect]
     Active Substance: ACETAMINOPHEN
     Indication: Product used for unknown indication
     Dosage: 100 TABLETS OF 325 MG
     Route: 065
  2. FERROUS SULFATE [Suspect]
     Active Substance: FERROUS SULFATE
     Indication: Product used for unknown indication
     Dosage: 100 TABLETS
     Route: 065

REACTIONS (7)
  - Acute hepatic failure [Fatal]
  - Overdose [Unknown]
  - Unresponsive to stimuli [Unknown]
  - Hypotension [Unknown]
  - Vomiting [Unknown]
  - Lethargy [Unknown]
  - Abdominal pain [Unknown]
